FAERS Safety Report 24590326 (Version 2)
Quarter: 2025Q1

REPORT INFORMATION
  Report Type: Report from Study
  Country: US (occurrence: US)
  Receive Date: 20241107
  Receipt Date: 20250108
  Transmission Date: 20250409
  Serious: Yes (Other)
  Sender: NOVARTIS
  Company Number: US-002147023-NVSC2024US215477

PATIENT
  Sex: Female

DRUGS (1)
  1. LEQVIO [Suspect]
     Active Substance: INCLISIRAN SODIUM
     Indication: Product used for unknown indication
     Route: 058
     Dates: start: 20240911

REACTIONS (9)
  - Autoimmune disorder [Unknown]
  - Hepatic cirrhosis [Unknown]
  - Injection site pain [Unknown]
  - Arterial disorder [Unknown]
  - Hypertension [Unknown]
  - Pain [Unknown]
  - Cough [Recovering/Resolving]
  - Illness [Unknown]
  - Blood triglycerides increased [Unknown]
